FAERS Safety Report 18278551 (Version 2)
Quarter: 2020Q4

REPORT INFORMATION
  Report Type: Spontaneous
  Country: GB (occurrence: GB)
  Receive Date: 20200917
  Receipt Date: 20201023
  Transmission Date: 20210113
  Serious: Yes (Other)
  Sender: FDA-Public Use
  Company Number: GB-PFIZER INC-2020352709

PATIENT
  Sex: Male

DRUGS (1)
  1. VORICONAZOLE. [Suspect]
     Active Substance: VORICONAZOLE
     Dosage: UNK

REACTIONS (3)
  - Postoperative wound infection [Unknown]
  - Antibiotic level below therapeutic [Unknown]
  - Aspergillus infection [Unknown]
